FAERS Safety Report 11250453 (Version 1)
Quarter: 2015Q3

REPORT INFORMATION
  Report Type: Spontaneous
  Country: US (occurrence: US)
  Receive Date: 20150708
  Receipt Date: 20150708
  Transmission Date: 20151125
  Serious: No
  Sender: FDA-Public Use
  Company Number: US-ELI_LILLY_AND_COMPANY-US201008008814

PATIENT
  Age: 57 Year
  Sex: Female
  Weight: 120.8 kg

DRUGS (1)
  1. XIGRIS [Suspect]
     Active Substance: DROTRECOGIN ALFA (ACTIVATED)
     Indication: SEPTIC SHOCK
     Dosage: 20 MG, OTHER
     Route: 042

REACTIONS (2)
  - Accidental overdose [Unknown]
  - Medication error [Unknown]
